FAERS Safety Report 9796044 (Version 2)
Quarter: 2014Q1

REPORT INFORMATION
  Report Type: Spontaneous
  Country: IT (occurrence: IT)
  Receive Date: 20140103
  Receipt Date: 20140228
  Transmission Date: 20141002
  Serious: Yes (Hospitalization)
  Sender: FDA-Public Use
  Company Number: IT-PFIZER INC-2013371301

PATIENT
  Age: 86 Year
  Sex: Female

DRUGS (7)
  1. AMIODAR [Suspect]
     Indication: ARRHYTHMIA
     Dosage: 200 MG, 1X/DAY
     Route: 048
     Dates: start: 20131120
  2. CARDICOR [Suspect]
     Indication: ARRHYTHMIA
     Dosage: 2.5 MG, 1X/DAY
     Route: 048
     Dates: start: 20131120
  3. CITALOPRAM [Concomitant]
     Dosage: UNK
  4. MESALAZINE [Concomitant]
     Dosage: UNK
  5. LEVOPRAID [Concomitant]
     Dosage: UNK
  6. COUMADIN [Concomitant]
     Dosage: UNK
  7. RANIBLOC [Concomitant]
     Dosage: UNK

REACTIONS (2)
  - Asthenia [Recovered/Resolved]
  - Polyuria [Recovered/Resolved]
